FAERS Safety Report 8027478-9 (Version None)
Quarter: 2011Q4

REPORT INFORMATION
  Report Type: 
  Country: None (occurrence: None)
  Receive Date: 20111130
  Receipt Date: 20110811
  Transmission Date: 20120403
  Serious: Yes (Hospitalization, Other)
  Sender: FDA-Public Use
  Company Number: US201108003901

PATIENT
  Age: 37 Year
  Sex: Female
  Weight: 107 kg

DRUGS (6)
  1. TRIGLIDE [Concomitant]
  2. BYETTA [Suspect]
     Indication: TYPE 2 DIABETES MELLITUS
     Dosage: 5 UG, BID, SUBCUTANEOUS
     Route: 058
     Dates: start: 20110412
  3. METFORMIN HCL [Concomitant]
  4. SYNTHROID [Concomitant]
  5. VYTORIN [Concomitant]
  6. LOVAZA [Concomitant]

REACTIONS (3)
  - WEIGHT INCREASED [None]
  - PANCREATITIS [None]
  - WHEEZING [None]
